APPROVED DRUG PRODUCT: TEGRETOL
Active Ingredient: CARBAMAZEPINE
Strength: 200MG
Dosage Form/Route: TABLET;ORAL
Application: N016608 | Product #001 | TE Code: AB
Applicant: NOVARTIS PHARMACEUTICALS CORP
Approved: Approved Prior to Jan 1, 1982 | RLD: Yes | RS: Yes | Type: RX